FAERS Safety Report 6443998-2 (Version None)
Quarter: 2009Q4

REPORT INFORMATION
  Report Type: 
  Country: None (occurrence: None)
  Receive Date: 20091116
  Receipt Date: 20091116
  Transmission Date: 20100525
  Serious: Yes (Life-Threatening)
  Sender: FDA-Public Use
  Company Number: None

PATIENT
  Age: 53 Year
  Sex: Male
  Weight: 90.7194 kg

DRUGS (1)
  1. XOLAIR [Suspect]
     Indication: ASTHMA
     Dosage: EVERY 2 WEEKS
     Dates: start: 20080115, end: 20091015

REACTIONS (1)
  - MALIGNANT MELANOMA [None]
